FAERS Safety Report 9425997 (Version 1)
Quarter: 2013Q3

REPORT INFORMATION
  Report Type: Spontaneous
  Country: US (occurrence: US)
  Receive Date: 20130730
  Receipt Date: 20130730
  Transmission Date: 20140515
  Serious: Yes (Hospitalization)
  Sender: FDA-Public Use
  Company Number: US-TEVA-421083USA

PATIENT
  Age: 67 Year
  Sex: Male

DRUGS (6)
  1. RISPERIDONE [Suspect]
     Indication: AGGRESSION
     Dosage: 0.5MG, 2 DOSES 18H APART
     Route: 048
  2. QUETIAPINE [Concomitant]
     Dosage: 800 MG/D
     Route: 048
  3. TRAZODONE [Concomitant]
     Dosage: AT BEDTIME
     Route: 065
  4. MELATONIN [Concomitant]
     Dosage: IN THE EVENING
     Route: 065
  5. SIMVASTATIN [Concomitant]
     Indication: HYPERLIPIDAEMIA
     Route: 065
  6. TEMAZEPAM [Concomitant]
     Dosage: AT BEDTIME AS NEEDED
     Route: 065

REACTIONS (1)
  - Pleurothotonus [Recovered/Resolved]
